APPROVED DRUG PRODUCT: MYCO-TRIACET II
Active Ingredient: NYSTATIN; TRIAMCINOLONE ACETONIDE
Strength: 100,000 UNITS/GM;0.1%
Dosage Form/Route: CREAM;TOPICAL
Application: A061954 | Product #002
Applicant: TEVA PHARMACEUTICALS USA INC
Approved: Sep 20, 1985 | RLD: No | RS: No | Type: DISCN